FAERS Safety Report 16152073 (Version 1)
Quarter: 2019Q2

REPORT INFORMATION
  Report Type: Spontaneous
  Country: IN (occurrence: IN)
  Receive Date: 20190403
  Receipt Date: 20190403
  Transmission Date: 20190711
  Serious: Yes (Other)
  Sender: FDA-Public Use
  Company Number: IN-PFIZER INC-2019138857

PATIENT
  Age: 70 Year
  Sex: Female
  Weight: 147 kg

DRUGS (1)
  1. CRIZALK [Suspect]
     Active Substance: CRIZOTINIB
     Indication: NON-SMALL CELL LUNG CANCER
     Dosage: 250 MG, 2X/DAY
     Route: 048
     Dates: start: 20170915

REACTIONS (4)
  - Lower respiratory tract infection [Unknown]
  - Neoplasm progression [Unknown]
  - Infection [Unknown]
  - Dysphonia [Unknown]
